FAERS Safety Report 4618556-2 (Version None)
Quarter: 2005Q1

REPORT INFORMATION
  Report Type: 
  Country: None (occurrence: None)
  Receive Date: 20050323
  Receipt Date: 20050310
  Transmission Date: 20050727
  Serious: Yes (Other)
  Sender: FDA-Public Use
  Company Number: 2005046701

PATIENT
  Sex: Female

DRUGS (1)
  1. BEXTRA [Suspect]
     Indication: BACK PAIN
     Dosage: ORAL
     Route: 048
     Dates: start: 20030910, end: 20030101

REACTIONS (4)
  - ERYTHEMA MULTIFORME [None]
  - LEUKOCYTOSIS [None]
  - NEUTROPHILIA [None]
  - URTICARIA [None]
